FAERS Safety Report 4887214-1 (Version None)
Quarter: 2005Q4

REPORT INFORMATION
  Report Type: 
  Country: None (occurrence: None)
  Receive Date: 20051223
  Receipt Date: 20050504
  Transmission Date: 20060501
  Serious: Yes (Hospitalization)
  Sender: FDA-Public Use
  Company Number: US_0505117197

PATIENT
  Age: 45 Year
  Sex: Female

DRUGS (1)
  1. HUMALOG [Suspect]
     Dates: start: 20050108

REACTIONS (6)
  - ANXIETY [None]
  - BLOOD GLUCOSE INCREASED [None]
  - DRUG INEFFECTIVE [None]
  - KETOACIDOSIS [None]
  - LOSS OF CONSCIOUSNESS [None]
  - MALAISE [None]
